FAERS Safety Report 8774339 (Version 1)
Quarter: 2012Q4

REPORT INFORMATION
  Report Type: 
  Country: US (occurrence: US)
  Receive Date: 20120907
  Receipt Date: 20120907
  Transmission Date: 20130627
  Serious: No
  Sender: FDA-Public Use
  Company Number: US-VERTEX PHARMACEUTICAL INC.-2012-020243

PATIENT

DRUGS (8)
  1. VX-950 [Suspect]
     Indication: HEPATITIS C
     Dosage: 750 mg, tid
     Route: 048
  2. PEGASYS [Concomitant]
     Indication: HEPATITIS C
     Dosage: 180 ?g, UNK
     Route: 058
  3. RIBAVIRIN [Concomitant]
     Indication: HEPATITIS C
     Route: 048
  4. VERAPAMIL [Concomitant]
     Route: 048
  5. ALLOPURINOL [Concomitant]
     Route: 048
  6. HYDROCO/APAP [Concomitant]
     Route: 048
  7. MULTIVITAMIN                       /00097801/ [Concomitant]
     Route: 048
  8. BENICAR [Concomitant]
     Route: 048

REACTIONS (2)
  - Bone pain [Recovered/Resolved]
  - Headache [Recovered/Resolved]
